FAERS Safety Report 12668505 (Version 2)
Quarter: 2016Q3

REPORT INFORMATION
  Report Type: Spontaneous
  Country: DE (occurrence: DE)
  Receive Date: 20160819
  Receipt Date: 20160830
  Transmission Date: 20161109
  Serious: Yes (Other)
  Sender: FDA-Public Use
  Company Number: DE-009507513-1608DEU010269

PATIENT
  Age: 26 Year
  Sex: Female

DRUGS (2)
  1. ANTIBIOTIC(UNSPECIFIED) [Concomitant]
     Indication: TONSILLITIS
     Dosage: UNK
     Route: 065
     Dates: start: 20160810, end: 20160816
  2. NOVIAL [Suspect]
     Active Substance: DESOGESTREL\ETHINYL ESTRADIOL
     Indication: CONTRACEPTION
     Dosage: UNKNOWN (1 IN 1 DAY)
     Route: 048
     Dates: start: 2003

REACTIONS (1)
  - Tonsillitis [Unknown]

NARRATIVE: CASE EVENT DATE: 20160810
